FAERS Safety Report 19064891 (Version 1)
Quarter: 2021Q1

REPORT INFORMATION
  Report Type: Report from Study
  Country: US (occurrence: US)
  Receive Date: 20210326
  Receipt Date: 20210326
  Transmission Date: 20210420
  Serious: Yes (Hospitalization, Other)
  Sender: FDA-Public Use
  Company Number: US-JNJFOC-A-US2019-198666

PATIENT
  Age: 54 Year
  Sex: Female
  Weight: 73.47 kg

DRUGS (4)
  1. PERCOCET [Suspect]
     Active Substance: ACETAMINOPHEN\OXYCODONE HYDROCHLORIDE
     Dosage: 5 MG EVERY 6 HOURS
     Route: 065
  2. OPSUMIT [Suspect]
     Active Substance: MACITENTAN
     Route: 048
  3. ELIQUIS [Concomitant]
     Active Substance: APIXABAN
     Route: 065
  4. OPSUMIT [Suspect]
     Active Substance: MACITENTAN
     Indication: PULMONARY ARTERIAL HYPERTENSION
     Dosage: 10 MG, QD
     Route: 048

REACTIONS (2)
  - Post procedural complication [Unknown]
  - Knee arthroplasty [Unknown]
